FAERS Safety Report 6171003-4 (Version None)
Quarter: 2009Q2

REPORT INFORMATION
  Report Type: 
  Country: None (occurrence: None)
  Receive Date: 20090429
  Receipt Date: 20090424
  Transmission Date: 20091009
  Serious: Yes (Hospitalization)
  Sender: FDA-Public Use
  Company Number: US-BRISTOL-MYERS SQUIBB COMPANY-14572697

PATIENT
  Age: 44 Year
  Sex: Female
  Weight: 63 kg

DRUGS (3)
  1. CISPLATIN [Suspect]
     Indication: CERVIX CARCINOMA
     Dosage: INITIATED ON 12JAN09.30MG/M2/WEEK X 6 WEEKS.FIRST COURSE:12JAN09.
     Dates: start: 20090216, end: 20090216
  2. ERBITUX [Suspect]
     Indication: CERVIX CARCINOMA
     Dosage: INITIATED ON 12JAN09.400MG/M2 WEEK 1 THEN 250MG/M2X5 WEEKS.FIRST COURSE:12JAN09.
     Dates: start: 20090216, end: 20090216
  3. RADIOTHERAPY [Suspect]
     Indication: CERVIX CARCINOMA
     Dosage: 1 DF=3000CGY.NUMBER OF FRACTION:5.NO OF ELAPSED DAYS:61
     Dates: start: 20090312, end: 20090312

REACTIONS (7)
  - DYSPNOEA [None]
  - FATIGUE [None]
  - FIBROSIS [None]
  - HAEMOGLOBIN DECREASED [None]
  - INFECTION [None]
  - SINUS TACHYCARDIA [None]
  - URINARY TRACT INFECTION [None]
